FAERS Safety Report 24338657 (Version 1)
Quarter: 2024Q3

REPORT INFORMATION
  Report Type: Spontaneous
  Country: US (occurrence: US)
  Receive Date: 20240919
  Receipt Date: 20240919
  Transmission Date: 20241017
  Serious: No
  Sender: SANOFI AVENTIS
  Company Number: US-SA-2024SA270179

PATIENT
  Age: 2 Year
  Sex: Female

DRUGS (1)
  1. DUPIXENT [Suspect]
     Active Substance: DUPILUMAB
     Indication: Eczema
     Dosage: 300.000MG Q4W
     Route: 058
     Dates: start: 2023

REACTIONS (3)
  - Pruritus [Recovering/Resolving]
  - Inappropriate schedule of product administration [Unknown]
  - Eczema [Recovering/Resolving]

NARRATIVE: CASE EVENT DATE: 20240201
